FAERS Safety Report 8923811 (Version 1)
Quarter: 2012Q4

REPORT INFORMATION
  Report Type: 
  Country: US (occurrence: US)
  Receive Date: 20121126
  Receipt Date: 20121126
  Transmission Date: 20130627
  Serious: Yes (Other)
  Sender: FDA-Public Use
  Company Number: US-ROCHE-1158554

PATIENT
  Age: 31 Year
  Sex: Male

DRUGS (2)
  1. ORLISTAT [Suspect]
     Indication: WEIGHT DECREASED
     Route: 048
  2. ORLISTAT [Suspect]
     Route: 048

REACTIONS (2)
  - Diarrhoea [Recovered/Resolved]
  - Activities of daily living impaired [Recovered/Resolved]
